FAERS Safety Report 8123361-9 (Version None)
Quarter: 2012Q1

REPORT INFORMATION
  Report Type: 
  Country: None (occurrence: None)
  Receive Date: 20120208
  Receipt Date: 20120201
  Transmission Date: 20120608
  Serious: Yes (Other)
  Sender: FDA-Public Use
  Company Number: US-ASTRAZENECA-2011SE73549

PATIENT
  Age: 56 Year
  Sex: Male

DRUGS (1)
  1. CRESTOR [Suspect]
     Route: 048

REACTIONS (7)
  - PAIN [None]
  - NECK INJURY [None]
  - MYOCARDIAL INFARCTION [None]
  - LIFE EXPECTANCY SHORTENED [None]
  - LIMB INJURY [None]
  - BACK INJURY [None]
  - DIABETES MELLITUS [None]
